FAERS Safety Report 8622229-9 (Version None)
Quarter: 2012Q3

REPORT INFORMATION
  Report Type: 
  Country: None (occurrence: None)
  Receive Date: 20120827
  Receipt Date: 20120515
  Transmission Date: 20120928
  Serious: Yes (Hospitalization)
  Sender: FDA-Public Use
  Company Number: US-009507513-1208USA008331

PATIENT

DRUGS (4)
  1. VICTRELIS [Suspect]
     Indication: HEPATITIS C
     Dosage: UNK
     Route: 048
     Dates: start: 20120421
  2. METFORMIN HCL [Concomitant]
     Indication: DIABETES MELLITUS
  3. REBETOL [Suspect]
     Dosage: 1200 MG, QD
     Route: 048
     Dates: start: 20120324
  4. PEGINTERFERON ALFA-2A [Suspect]
     Dosage: 180 MICROGRAM, QW
     Dates: start: 20120324

REACTIONS (6)
  - PRURITUS [None]
  - EPHELIDES [None]
  - DEHYDRATION [None]
  - VOMITING [None]
  - DIARRHOEA [None]
  - FATIGUE [None]
